FAERS Safety Report 9023683 (Version 2)
Quarter: 2013Q1

REPORT INFORMATION
  Report Type: Report from Study
  Country: BG (occurrence: BG)
  Receive Date: 20130121
  Receipt Date: 20130308
  Transmission Date: 20140127
  Serious: Yes (Hospitalization)
  Sender: FDA-Public Use
  Company Number: BG-ASTELLAS-2013EU000212

PATIENT
  Age: 50 None
  Sex: Male
  Weight: 90 kg

DRUGS (1)
  1. BLINDED SOLIFENACIN-MIRABEGRON [Suspect]
     Indication: HYPERTONIC BLADDER
     Dosage: UNK
     Route: 048
     Dates: start: 20121008, end: 20121228

REACTIONS (1)
  - Hepatitis acute [Not Recovered/Not Resolved]
